FAERS Safety Report 8715081 (Version 3)
Quarter: 2012Q4

REPORT INFORMATION
  Report Type: 
  Country: DE (occurrence: CA)
  Receive Date: 20120809
  Receipt Date: 20120907
  Transmission Date: 20130627
  Serious: Yes (Hospitalization)
  Sender: FDA-Public Use
  Company Number: CA-FRI-1000037667

PATIENT
  Age: 60 None
  Sex: Female

DRUGS (2)
  1. ROFLUMILAST [Suspect]
     Dosage: 0.5 DF
     Route: 048
     Dates: start: 20120524, end: 201206
  2. ROFLUMILAST [Suspect]
     Dosage: 0.5 DF
     Route: 048
     Dates: start: 2012

REACTIONS (7)
  - Heart rate increased [Recovering/Resolving]
  - Productive cough [Unknown]
  - Malaise [Recovering/Resolving]
  - Diarrhoea [Not Recovered/Not Resolved]
  - Headache [Unknown]
  - Abdominal pain upper [Unknown]
  - Wrong technique in drug usage process [Not Recovered/Not Resolved]
